FAERS Safety Report 20740339 (Version 1)
Quarter: 2022Q2

REPORT INFORMATION
  Report Type: Spontaneous
  Country: CN (occurrence: None)
  Receive Date: 20220422
  Receipt Date: 20220422
  Transmission Date: 20220720
  Serious: Yes (Other)
  Sender: FDA-Public Use
  Company Number: CN-ROCHE-3076887

PATIENT

DRUGS (4)
  1. GAZYVA [Suspect]
     Active Substance: OBINUTUZUMAB
     Indication: Follicular lymphoma
     Dosage: DAY 1, DAY 8, DAY 15
     Route: 042
     Dates: start: 20211119
  2. EPIRUBICIN [Concomitant]
     Active Substance: EPIRUBICIN
     Indication: Follicular lymphoma
     Dosage: DAY 2, DAY3
     Dates: start: 20211120
  3. VINDESINE [Concomitant]
     Active Substance: VINDESINE
     Indication: Follicular lymphoma
     Dosage: DAY 2
     Dates: start: 20211120
  4. PREDNISONE [Concomitant]
     Active Substance: PREDNISONE
     Indication: Follicular lymphoma
     Dosage: DAY 2 TO DAY 6
     Dates: start: 20211120

REACTIONS (2)
  - Myelosuppression [Unknown]
  - Agranulocytosis [Unknown]
